FAERS Safety Report 25005865 (Version 1)
Quarter: 2025Q1

REPORT INFORMATION
  Report Type: Spontaneous
  Country: US (occurrence: US)
  Receive Date: 20250224
  Receipt Date: 20250224
  Transmission Date: 20250408
  Serious: No
  Sender: PFIZER
  Company Number: US-PFIZER INC-202400316234

PATIENT
  Age: 79 Year
  Sex: Male

DRUGS (2)
  1. TUKYSA [Suspect]
     Active Substance: TUCATINIB
     Indication: Neoplasm malignant
     Dosage: 150MG, TWO TABLETS TWICE A DAY
  2. TUKYSA [Suspect]
     Active Substance: TUCATINIB
     Dosage: 1 TABLET TWICE DAILY

REACTIONS (2)
  - Neoplasm progression [Unknown]
  - Off label use [Unknown]
